FAERS Safety Report 18867724 (Version 1)
Quarter: 2021Q1

REPORT INFORMATION
  Report Type: Spontaneous
  Country: US (occurrence: US)
  Receive Date: 20210209
  Receipt Date: 20210209
  Transmission Date: 20210420
  Serious: No
  Sender: FDA-Public Use
  Company Number: US-SA-2021SA035830

PATIENT
  Age: 48 Year
  Sex: Female

DRUGS (2)
  1. TOUJEO [Suspect]
     Active Substance: INSULIN GLARGINE
     Indication: TYPE 2 DIABETES MELLITUS
     Dosage: 70 IU, QD
  2. TERAQUIN [Concomitant]
     Dosage: UNK

REACTIONS (2)
  - Respiratory tract congestion [Unknown]
  - Asthma [Unknown]
